FAERS Safety Report 10621617 (Version 1)
Quarter: 2014Q4

REPORT INFORMATION
  Report Type: Spontaneous
  Country: US (occurrence: None)
  Receive Date: 20141126
  Receipt Date: 20141126
  Transmission Date: 20150529
  Serious: Yes (Other)
  Sender: FDA-Public Use
  Company Number: None

PATIENT
  Age: 18 Year
  Sex: Male
  Weight: 79.38 kg

DRUGS (1)
  1. ZIPRASIDONE HCL [Suspect]
     Active Substance: ZIPRASIDONE HYDROCHLORIDE
     Indication: BIPOLAR DISORDER
     Dosage: LUPIN  TWICE DAILY  TAKEN BY MOUTH
     Route: 048
     Dates: start: 20141119, end: 20141125

REACTIONS (3)
  - Tongue disorder [None]
  - Bite [None]
  - Jaw disorder [None]

NARRATIVE: CASE EVENT DATE: 20141125
